FAERS Safety Report 5743756-8 (Version None)
Quarter: 2008Q2

REPORT INFORMATION
  Report Type: 
  Country: None (occurrence: None)
  Receive Date: 20080516
  Receipt Date: 20080109
  Transmission Date: 20081010
  Serious: Yes (Hospitalization)
  Sender: FDA-Public Use
  Company Number: 2008S1000018

PATIENT
  Sex: Male

DRUGS (5)
  1. CUBICIN [Suspect]
     Indication: CELLULITIS STAPHYLOCOCCAL
     Dosage: 5.8 MG/KG;Q24H;IV
     Route: 042
     Dates: start: 20071001, end: 20071101
  2. CUBICIN [Suspect]
     Indication: STAPHYLOCOCCAL BACTERAEMIA
     Dosage: 5.8 MG/KG;Q24H;IV
     Route: 042
     Dates: start: 20071001, end: 20071101
  3. PIPERACILLIN W/TAZOBACTAM [Concomitant]
  4. CEFEPIME HYDROCHLORIDE [Concomitant]
  5. MOXIFLOXACIN HCL [Concomitant]

REACTIONS (5)
  - CHEST PAIN [None]
  - DIARRHOEA [None]
  - LIVER FUNCTION TEST ABNORMAL [None]
  - MUSCULAR WEAKNESS [None]
  - PLEURAL EFFUSION [None]
